FAERS Safety Report 5027514-8 (Version None)
Quarter: 2006Q2

REPORT INFORMATION
  Report Type: 
  Country: None (occurrence: None)
  Receive Date: 20060515
  Receipt Date: 20060209
  Transmission Date: 20061013
  Serious: No
  Sender: FDA-Public Use
  Company Number: S06-USA-00509-01

PATIENT
  Age: 82 Year
  Sex: Female

DRUGS (13)
  1. NAMENDA [Suspect]
     Indication: DEMENTIA ALZHEIMER'S TYPE
     Dosage: 5 MG, QD PO
     Route: 048
     Dates: start: 20060101, end: 20060101
  2. NAMENDA [Suspect]
     Indication: DEMENTIA ALZHEIMER'S TYPE
     Dosage: 10 MG QD PO
     Route: 048
     Dates: start: 20060101
  3. RISPERDAL [Concomitant]
  4. ALTACE [Concomitant]
  5. ATENOLOL [Concomitant]
  6. NORVASC [Concomitant]
  7. FOSAMAX [Concomitant]
  8. FLUPHENAZINE [Concomitant]
  9. BENZTROPINE MESYLATE [Concomitant]
  10. CALCIUM GLUCONATE [Concomitant]
  11. IRON [Concomitant]
  12. MAGNESIUM [Concomitant]
  13. ASPIRIN [Concomitant]

REACTIONS (1)
  - CONFUSIONAL STATE [None]
